FAERS Safety Report 24786582 (Version 1)
Quarter: 2024Q4

REPORT INFORMATION
  Report Type: Other
  Country: JP (occurrence: JP)
  Receive Date: 20241230
  Receipt Date: 20241230
  Transmission Date: 20250114
  Serious: Yes (Hospitalization)
  Sender: ANI
  Company Number: JP-ANIPHARMA-014146

PATIENT
  Age: 74 Year
  Sex: Male

DRUGS (4)
  1. CLOPIDOGREL [Suspect]
     Active Substance: CLOPIDOGREL BISULFATE
     Indication: Thrombosis prophylaxis
  2. SITAGLIPTIN [Concomitant]
     Active Substance: SITAGLIPTIN
     Indication: Diabetes mellitus
  3. REPAGLINIDE [Concomitant]
     Active Substance: DULOXETINE HYDROCHLORIDE\REPAGLINIDE\TICAGRELOR
     Indication: Diabetes mellitus
  4. IPRAGLIFLOZIN [Concomitant]
     Active Substance: IPRAGLIFLOZIN
     Indication: Diabetes mellitus

REACTIONS (3)
  - Drug interaction [Unknown]
  - Hypoglycaemia [Unknown]
  - Drug ineffective [Unknown]
